FAERS Safety Report 8017551-3 (Version None)
Quarter: 2011Q4

REPORT INFORMATION
  Report Type: 
  Country: None (occurrence: None)
  Receive Date: 20111228
  Receipt Date: 20111213
  Transmission Date: 20120403
  Serious: Yes (Disabling)
  Sender: FDA-Public Use
  Company Number: 2011P1014255

PATIENT
  Age: 48 Year
  Sex: Female

DRUGS (4)
  1. FENTANYL-75 [Suspect]
     Indication: POST LAMINECTOMY SYNDROME
     Dosage: 1 PATCH;Q48H;TDER
     Route: 062
     Dates: start: 20060101
  2. FENTANYL [Suspect]
  3. FENTANYL [Suspect]
     Indication: POST LAMINECTOMY SYNDROME
     Dates: start: 20060101
  4. FENTANYL CITRATE [Suspect]
     Indication: POST LAMINECTOMY SYNDROME
     Dosage: 1 PATCH;Q48H;TDER
     Route: 062
     Dates: start: 20060101

REACTIONS (8)
  - THINKING ABNORMAL [None]
  - MALAISE [None]
  - TREMOR [None]
  - HYPERHIDROSIS [None]
  - FEELING ABNORMAL [None]
  - ANGER [None]
  - WITHDRAWAL SYNDROME [None]
  - MOVEMENT DISORDER [None]
